FAERS Safety Report 6610106-4 (Version None)
Quarter: 2010Q1

REPORT INFORMATION
  Report Type: 
  Country: None (occurrence: None)
  Receive Date: 20100302
  Receipt Date: 20100219
  Transmission Date: 20100710
  Serious: Yes (Other)
  Sender: FDA-Public Use
  Company Number: US-JNJFOC-20100209249

PATIENT
  Sex: Female
  Weight: 131.54 kg

DRUGS (2)
  1. SIMPONI [Suspect]
     Indication: RHEUMATOID ARTHRITIS
     Route: 058
  2. ALBUTEROL [Concomitant]
     Indication: ASTHMA
     Route: 055

REACTIONS (2)
  - DYSPNOEA [None]
  - SWELLING FACE [None]
